FAERS Safety Report 4362581-6 (Version None)
Quarter: 2004Q2

REPORT INFORMATION
  Report Type: 
  Country: None (occurrence: None)
  Receive Date: 20040520
  Receipt Date: 20040504
  Transmission Date: 20050107
  Serious: Yes (Hospitalization)
  Sender: FDA-Public Use
  Company Number: T03-USA-00359-01

PATIENT
  Age: 62 Year
  Sex: Female
  Weight: 67.1324 kg

DRUGS (9)
  1. MEMANTINE HCL [Suspect]
     Indication: DEMENTIA ALZHEIMER'S TYPE
     Dosage: 10 MG BID PO
     Route: 048
     Dates: start: 20020718, end: 20030127
  2. MEMANTINE HCL [Suspect]
     Indication: DEMENTIA ALZHEIMER'S TYPE
     Dosage: 20 MG QHS PO
     Route: 048
  3. VITAMIN E [Concomitant]
  4. VITAMIN C [Concomitant]
  5. MULTI-VITAMINS [Concomitant]
  6. PROTONIX [Concomitant]
  7. AMBIEN [Concomitant]
  8. KAY CIEL DURA-TABS [Concomitant]
  9. MONOPRIL FOSINOPRIL SODIUIM) [Concomitant]

REACTIONS (13)
  - ACCIDENTAL OVERDOSE [None]
  - ATRIAL FLUTTER [None]
  - CARDIAC FAILURE CONGESTIVE [None]
  - CARDIOMYOPATHY [None]
  - CONDITION AGGRAVATED [None]
  - LUNG CONSOLIDATION [None]
  - LUNG INFILTRATION [None]
  - MEMORY IMPAIRMENT [None]
  - MYOCARDITIS [None]
  - PLEURAL EFFUSION [None]
  - PRODUCTIVE COUGH [None]
  - RHINORRHOEA [None]
  - SINUS TACHYCARDIA [None]
